FAERS Safety Report 6198690-9 (Version None)
Quarter: 2009Q2

REPORT INFORMATION
  Report Type: 
  Country: None (occurrence: None)
  Receive Date: 20090519
  Receipt Date: 20090519
  Transmission Date: 20091009
  Serious: Yes (Death)
  Sender: FDA-Public Use
  Company Number: None

PATIENT
  Age: 62 Year
  Sex: Female
  Weight: 148.8 kg

DRUGS (1)
  1. HEPARIN IN DEXTROSE 5% 25.000 UNITS/ 500ML BAXTER HEALTHCARE [Suspect]
     Indication: CONTINUOUS HAEMODIAFILTRATION
     Dosage: TITRATE CONTINUOUS IV DRIP
     Route: 041
     Dates: start: 20090510, end: 20090514

REACTIONS (3)
  - ACTIVATED PARTIAL THROMBOPLASTIN TIME PROLONGED [None]
  - CEREBRAL HAEMORRHAGE [None]
  - MENTAL STATUS CHANGES [None]
